FAERS Safety Report 5514879-3 (Version None)
Quarter: 2007Q4

REPORT INFORMATION
  Report Type: 
  Country: None (occurrence: None)
  Receive Date: 20071113
  Receipt Date: 20060918
  Transmission Date: 20080405
  Serious: No
  Sender: FDA-Public Use
  Company Number: A0620519A

PATIENT
  Age: 77 Year
  Sex: Male

DRUGS (3)
  1. COREG [Suspect]
     Dosage: 3.125MG TWICE PER DAY
     Route: 048
     Dates: start: 20060801
  2. PLAVIX [Concomitant]
  3. MULTIPLE MEDICATIONS [Concomitant]

REACTIONS (2)
  - FATIGUE [None]
  - HYPERHIDROSIS [None]
